FAERS Safety Report 9097021 (Version 1)
Quarter: 2013Q1

REPORT INFORMATION
  Report Type: Spontaneous
  Country: US (occurrence: None)
  Receive Date: 20130124
  Receipt Date: 20130124
  Transmission Date: 20140127
  Serious: Yes (Other)
  Sender: FDA-Public Use
  Company Number: A1009196A

PATIENT
  Sex: Male

DRUGS (1)
  1. CONTAC (NOS) (FORMULATION UNKNOWN) (CONTAC NOS)) [Suspect]
     Route: 048

REACTIONS (1)
  - Anaphylactic reaction [None]
